FAERS Safety Report 9549302 (Version 1)
Quarter: 2013Q2

REPORT INFORMATION
  Report Type: Spontaneous
  Country: US (occurrence: None)
  Receive Date: 20130627
  Receipt Date: 20130627
  Transmission Date: 20140414
  Serious: Yes (Other)
  Sender: FDA-Public Use
  Company Number: 1000045472

PATIENT
  Age: 43 Year
  Sex: Female

DRUGS (3)
  1. LINZESS [Suspect]
     Indication: PELVIC FLOOR DYSSYNERGIA
     Route: 048
     Dates: start: 20130520, end: 20130520
  2. SPIRONOLACTONE (SPIRONOLACTONE) [Concomitant]
  3. LEVOTHYROXINE [Concomitant]

REACTIONS (4)
  - Abdominal pain upper [None]
  - Diarrhoea [None]
  - Abdominal distension [None]
  - Off label use [None]
